FAERS Safety Report 8362924-2 (Version None)
Quarter: 2012Q2

REPORT INFORMATION
  Report Type: 
  Country: None (occurrence: None)
  Receive Date: 20120516
  Receipt Date: 20120502
  Transmission Date: 20120825
  Serious: Yes (Death, Other)
  Sender: FDA-Public Use
  Company Number: GB-RANBAXY-2012R1-55489

PATIENT
  Age: 38 Year
  Sex: Male
  Weight: 129.5 kg

DRUGS (1)
  1. FLUOXETINE [Suspect]
     Indication: ANXIETY
     Dosage: UNK
     Route: 065
     Dates: end: 20120104

REACTIONS (3)
  - SUICIDAL IDEATION [None]
  - DEPRESSED MOOD [None]
  - DRUG INEFFECTIVE [None]
